FAERS Safety Report 4332719-5 (Version None)
Quarter: 2004Q1

REPORT INFORMATION
  Report Type: 
  Country: None (occurrence: None)
  Receive Date: 20040330
  Receipt Date: 20040316
  Transmission Date: 20041129
  Serious: Yes (Death)
  Sender: FDA-Public Use
  Company Number: US-JNJFOC-20030904362

PATIENT
  Age: 65 Year
  Sex: Female
  Weight: 89.8122 kg

DRUGS (7)
  1. REMICADE [Suspect]
     Indication: RHEUMATOID ARTHRITIS
     Dosage: 300 MG, 1 IN 1 TOTAL, INTRAVENOUS
     Route: 042
     Dates: start: 20030417
  2. BEXTRA [Concomitant]
  3. METHOTREXATE [Concomitant]
  4. DIOVAN [Concomitant]
  5. MICRO K (POTASSIUM CHLORIDE) [Concomitant]
  6. FOLIC ACID [Concomitant]
  7. PRILOSEC [Concomitant]

REACTIONS (2)
  - CONDITION AGGRAVATED [None]
  - HYPERTENSION [None]
